FAERS Safety Report 12356443 (Version 2)
Quarter: 2017Q1

REPORT INFORMATION
  Report Type: Spontaneous
  Country: US (occurrence: US)
  Receive Date: 20160511
  Receipt Date: 20170216
  Transmission Date: 20170428
  Serious: Yes (Other)
  Sender: FDA-Public Use
  Company Number: US-009507513-1605USA004475

PATIENT
  Sex: Female

DRUGS (3)
  1. IMPLANON [Suspect]
     Active Substance: ETONOGESTREL
     Dosage: 1 DF, EVERY THREE YEARS
     Route: 059
     Dates: end: 20111202
  2. IMPLANON [Suspect]
     Active Substance: ETONOGESTREL
     Indication: CONTRACEPTION
     Dosage: 1 DF, EVERY THREE YEARS
     Route: 059
     Dates: start: 20111202
  3. LABETALOL [Concomitant]
     Active Substance: LABETALOL\LABETALOL HYDROCHLORIDE
     Indication: HYPERTENSION

REACTIONS (21)
  - Pregnancy with implant contraceptive [Recovered/Resolved]
  - Gallbladder disorder [Unknown]
  - Depression [Unknown]
  - Lactation disorder [Unknown]
  - Blood pressure inadequately controlled [Recovering/Resolving]
  - Complication associated with device [Not Recovered/Not Resolved]
  - Device difficult to use [Not Recovered/Not Resolved]
  - Vascular injury [Unknown]
  - Device deployment issue [Not Recovered/Not Resolved]
  - Premature delivery [Recovered/Resolved]
  - Drug dose omission [Unknown]
  - Device defective [Unknown]
  - Pre-eclampsia [Recovered/Resolved]
  - Unintended pregnancy [Recovered/Resolved]
  - Surgery [Not Recovered/Not Resolved]
  - Migraine with aura [Unknown]
  - Anxiety [Unknown]
  - Female sterilisation [Unknown]
  - Migration of implanted drug [Unknown]
  - Nerve injury [Unknown]
  - Vaginal haemorrhage [Unknown]

NARRATIVE: CASE EVENT DATE: 20111114
